FAERS Safety Report 10317260 (Version 2)
Quarter: 2014Q3

REPORT INFORMATION
  Report Type: Other
  Country: US (occurrence: US)
  Receive Date: 20140719
  Receipt Date: 20140917
  Transmission Date: 20150326
  Serious: Yes (Hospitalization, Other)
  Sender: FDA-Public Use
  Company Number: US-GSKPPD-2014GSK007986

PATIENT
  Age: 60 Year
  Sex: Female

DRUGS (8)
  1. VALSARTAN. [Concomitant]
     Active Substance: VALSARTAN
     Route: 048
  2. AVANDIA [Suspect]
     Active Substance: ROSIGLITAZONE MALEATE
     Indication: DIABETES MELLITUS
     Route: 048
  3. COREG [Concomitant]
     Active Substance: CARVEDILOL
  4. ASPIRIN. [Concomitant]
     Active Substance: ASPIRIN
  5. AVANDAMET [Suspect]
     Active Substance: METFORMIN HYDROCHLORIDE\ROSIGLITAZONE MALEATE
     Indication: DIABETES MELLITUS
     Dosage: 4/5000MG
     Route: 048
     Dates: start: 20050226
  6. NORVASC [Concomitant]
     Active Substance: AMLODIPINE BESYLATE
  7. PLAVIX [Concomitant]
     Active Substance: CLOPIDOGREL BISULFATE
     Route: 048
  8. LASIX [Concomitant]
     Active Substance: FUROSEMIDE

REACTIONS (3)
  - Coronary arterial stent insertion [Recovered/Resolved]
  - Coronary artery disease [Recovered/Resolved]
  - Cardiac failure congestive [Unknown]

NARRATIVE: CASE EVENT DATE: 20050223
